FAERS Safety Report 7450128-7 (Version None)
Quarter: 2011Q2

REPORT INFORMATION
  Report Type: 
  Country: None (occurrence: None)
  Receive Date: 20110421
  Receipt Date: 20110412
  Transmission Date: 20111010
  Serious: Yes (Hospitalization)
  Sender: FDA-Public Use
  Company Number: 1000020110

PATIENT
  Age: 49 Year
  Sex: Female

DRUGS (7)
  1. PLAVIX [Concomitant]
  2. ORFARIN (WARFARIN)-(WARFARIN) [Concomitant]
  3. TRILEPTAL [Suspect]
     Dosage: ONCE, ORAL
     Route: 048
     Dates: start: 20110320, end: 20110320
  4. PRESTARIUM (PERINDPRIL) (PERINDOPRIL) [Concomitant]
  5. LORAZEPAM [Suspect]
     Dosage: ONCE, ORAL
     Route: 048
     Dates: start: 20110320, end: 20110320
  6. NOLIPREL (INDAPAMIDE, PERINDOPRIL) (INDAPAMIDE, PERINDOPRIL) [Concomitant]
  7. NEBIVOLOL HCL [Suspect]
     Dosage: 50 MG, ONCE, ORAL
     Route: 048
     Dates: start: 20110320, end: 20110320

REACTIONS (5)
  - BRADYCARDIA [None]
  - SUICIDE ATTEMPT [None]
  - SOPOR [None]
  - HYPOTONIA [None]
  - DYSKINESIA [None]
